FAERS Safety Report 14236969 (Version 1)
Quarter: 2017Q4

REPORT INFORMATION
  Report Type: Spontaneous
  Country: US (occurrence: US)
  Receive Date: 20171129
  Receipt Date: 20171129
  Transmission Date: 20180321
  Serious: No
  Sender: FDA-Public Use
  Company Number: US-JNJFOC-20171108003

PATIENT
  Age: 74 Year
  Sex: Male
  Weight: 86.64 kg

DRUGS (2)
  1. ASPIRIN. [Concomitant]
     Active Substance: ASPIRIN
     Indication: PRODUCT USED FOR UNKNOWN INDICATION
     Route: 065
  2. TYLENOL REGULAR STRENGTH [Suspect]
     Active Substance: ACETAMINOPHEN
     Indication: MUSCULOSKELETAL PAIN
     Dosage: 2 CAPLETS EVERY 4 TO 6 HOURS, UP TO6 OR 8 CAPLETS A DAY FOR 3 OR 4 DAYS
     Route: 048
     Dates: start: 20171101

REACTIONS (1)
  - Drug effect incomplete [Unknown]
